FAERS Safety Report 10226952 (Version 2)
Quarter: 2014Q2

REPORT INFORMATION
  Report Type: Report from Study
  Country: CO (occurrence: CO)
  Receive Date: 20140610
  Receipt Date: 20140627
  Transmission Date: 20141212
  Serious: Yes (Other)
  Sender: FDA-Public Use
  Company Number: CO-ALEXION-A201401989

PATIENT
  Sex: 0

DRUGS (1)
  1. SOLIRIS [Suspect]
     Indication: PAROXYSMAL NOCTURNAL HAEMOGLOBINURIA
     Dosage: 900 MG, Q2W
     Route: 042
     Dates: start: 20131111

REACTIONS (6)
  - Pre-eclampsia [Not Recovered/Not Resolved]
  - Foetal hypokinesia [Unknown]
  - HELLP syndrome [Not Recovered/Not Resolved]
  - Exposure during pregnancy [Unknown]
  - Asthenia [Unknown]
  - Haemoglobinuria [Unknown]
